FAERS Safety Report 4728137-8 (Version None)
Quarter: 2005Q3

REPORT INFORMATION
  Report Type: 
  Country: None (occurrence: None)
  Receive Date: 20050728
  Receipt Date: 20050728
  Transmission Date: 20060218
  Serious: Yes (Other)
  Sender: FDA-Public Use
  Company Number: None

PATIENT
  Age: 51 Year
  Sex: Female
  Weight: 66.6788 kg

DRUGS (2)
  1. FENTANYL [Suspect]
     Indication: PAIN
     Dosage: 1 Q 72 HRS
  2. FENTANYL [Suspect]
     Indication: FIBROMYALGIA

REACTIONS (2)
  - APPLICATION SITE ERYTHEMA [None]
  - APPLICATION SITE VESICLES [None]
